FAERS Safety Report 5525893-6 (Version None)
Quarter: 2007Q4

REPORT INFORMATION
  Report Type: 
  Country: None (occurrence: None)
  Receive Date: 20071126
  Receipt Date: 20071112
  Transmission Date: 20080405
  Serious: Yes (Hospitalization)
  Sender: FDA-Public Use
  Company Number: DE-ASTRAZENECA-2007PK02369

PATIENT
  Age: 24 Year
  Sex: Male

DRUGS (14)
  1. SEROQUEL [Suspect]
     Route: 048
     Dates: start: 20070706, end: 20070718
  2. SEROQUEL [Suspect]
     Route: 048
     Dates: start: 20070719, end: 20070801
  3. SEROQUEL [Suspect]
     Route: 048
     Dates: start: 20070802, end: 20070820
  4. CIPRALEX [Suspect]
     Route: 048
     Dates: start: 20070706, end: 20070710
  5. CIPRALEX [Suspect]
     Route: 048
     Dates: start: 20070711, end: 20070713
  6. CIPRALEX [Suspect]
     Route: 048
     Dates: start: 20070714
  7. ERGENYL [Suspect]
     Route: 048
     Dates: start: 20070817, end: 20070819
  8. ERGENYL [Suspect]
     Route: 048
     Dates: start: 20070820
  9. ZOP [Concomitant]
     Route: 048
     Dates: start: 20070706
  10. DIAZEPAM [Concomitant]
     Route: 048
     Dates: start: 20070712, end: 20070719
  11. DIAZEPAM [Concomitant]
     Route: 048
     Dates: start: 20070720, end: 20070803
  12. DIAZEPAM [Concomitant]
     Route: 048
     Dates: start: 20070804, end: 20070812
  13. DIAZEPAM [Concomitant]
     Route: 048
     Dates: start: 20070813, end: 20070819
  14. DIAZEPAM [Concomitant]
     Route: 048
     Dates: start: 20070820, end: 20070826

REACTIONS (1)
  - HEPATIC ENZYME INCREASED [None]
